FAERS Safety Report 4852246-6 (Version None)
Quarter: 2005Q4

REPORT INFORMATION
  Report Type: 
  Country: None (occurrence: None)
  Receive Date: 20051213
  Receipt Date: 20051205
  Transmission Date: 20060501
  Serious: Yes (Death)
  Sender: FDA-Public Use
  Company Number: FR-AVENTIS-200513973FR

PATIENT
  Age: 72 Year
  Sex: Male
  Weight: 65 kg

DRUGS (12)
  1. FLAGYL [Suspect]
     Indication: KLEBSIELLA SEPSIS
     Route: 042
     Dates: start: 20051111, end: 20051116
  2. LOVENOX [Suspect]
     Dates: start: 20051109, end: 20051112
  3. OFLOCET [Suspect]
     Indication: KLEBSIELLA SEPSIS
     Route: 042
     Dates: start: 20051111, end: 20051116
  4. SOLU-MEDROL [Suspect]
     Route: 042
     Dates: start: 20051109, end: 20051116
  5. ROCEPHIN [Suspect]
     Indication: KLEBSIELLA SEPSIS
     Route: 042
     Dates: start: 20051111, end: 20051116
  6. SOPROL [Suspect]
     Route: 048
  7. PERFALGAN [Suspect]
     Route: 042
     Dates: start: 20051109, end: 20051116
  8. SPASFON [Concomitant]
     Dates: start: 20051109
  9. GLUCONATE CALCIUM [Concomitant]
     Dates: start: 20051109
  10. LOVENOX [Concomitant]
     Dates: start: 20051109, end: 20051112
  11. HORMONES AND RELATED AGENTS [Concomitant]
     Dates: end: 20051109
  12. RADIOTHERAPY [Concomitant]
     Dates: start: 20051110

REACTIONS (4)
  - GASTROINTESTINAL DISORDER [None]
  - GENERAL PHYSICAL HEALTH DETERIORATION [None]
  - KLEBSIELLA SEPSIS [None]
  - PANCYTOPENIA [None]
